FAERS Safety Report 9251335 (Version 1)
Quarter: 2013Q2

REPORT INFORMATION
  Report Type: Report from Study
  Country: DE (occurrence: DE)
  Receive Date: 20130424
  Receipt Date: 20130424
  Transmission Date: 20140414
  Serious: Yes (Hospitalization)
  Sender: FDA-Public Use
  Company Number: DE-BAYER-2013-051111

PATIENT
  Age: 52 Year
  Sex: Male

DRUGS (2)
  1. EXTAVIA [Suspect]
     Indication: MULTIPLE SCLEROSIS
     Dosage: 250 ?G, UNK
     Route: 058
     Dates: start: 20120127
  2. BELOC ZOK [Concomitant]
     Dosage: UNK
     Route: 048
     Dates: start: 201111

REACTIONS (1)
  - Trigeminal neuralgia [Recovered/Resolved]
